FAERS Safety Report 8436112-5 (Version None)
Quarter: 2012Q2

REPORT INFORMATION
  Report Type: 
  Country: None (occurrence: None)
  Receive Date: 20120607
  Receipt Date: 20120607
  Transmission Date: 20120825
  Serious: No
  Sender: FDA-Public Use
  Company Number: None

PATIENT
  Age: 33 Year
  Sex: Female
  Weight: 70.3075 kg

DRUGS (1)
  1. BUTRANS [Suspect]
     Indication: NECK PAIN
     Dosage: 20 MCG/HR WEEKLY TRANSDERMAL
     Route: 062
     Dates: start: 20120327, end: 20120606

REACTIONS (2)
  - DEVICE COLOUR ISSUE [None]
  - APPLICATION SITE PRURITUS [None]
